FAERS Safety Report 6775469-8 (Version None)
Quarter: 2010Q2

REPORT INFORMATION
  Report Type: 
  Country: None (occurrence: None)
  Receive Date: 20100617
  Receipt Date: 20100608
  Transmission Date: 20101027
  Serious: Yes (Other)
  Sender: FDA-Public Use
  Company Number: DE-PFIZER INC-2010071330

PATIENT
  Age: 60 Year
  Sex: Female

DRUGS (1)
  1. SORTIS [Suspect]
     Dosage: 20 MG, UNK
     Route: 048
     Dates: start: 20100501

REACTIONS (3)
  - GAIT DISTURBANCE [None]
  - MUSCLE SPASMS [None]
  - PAIN IN EXTREMITY [None]
